FAERS Safety Report 7901101-3 (Version None)
Quarter: 2011Q4

REPORT INFORMATION
  Report Type: 
  Country: None (occurrence: None)
  Receive Date: 20111108
  Receipt Date: 20111028
  Transmission Date: 20120403
  Serious: Yes (Other)
  Sender: FDA-Public Use
  Company Number: JP-SANOFI-AVENTIS-2011SA070740

PATIENT
  Age: 64 Year
  Sex: Male

DRUGS (6)
  1. CARVEDILOL [Concomitant]
     Dosage: STRENGTH: 2.5MG
  2. LANSOPRAZOLE [Concomitant]
     Dosage: STRENGTH: 15MG
  3. LASIX [Suspect]
     Indication: DIURETIC THERAPY
     Route: 048
     Dates: start: 20070601
  4. ASPIRIN [Concomitant]
     Dosage: STRENGTH: 100MG
  5. ALLOPURINOL [Concomitant]
     Dosage: STRENGTH: 100MG
  6. KREMEZIN [Concomitant]

REACTIONS (1)
  - HYPERAMYLASAEMIA [None]
